FAERS Safety Report 19470340 (Version 1)
Quarter: 2021Q2

REPORT INFORMATION
  Report Type: Report from Study
  Country: DE (occurrence: DE)
  Receive Date: 20210628
  Receipt Date: 20210628
  Transmission Date: 20210717
  Serious: Yes (Death)
  Sender: FDA-Public Use
  Company Number: DE-IPSEN BIOPHARMACEUTICALS, INC.-2021-15028

PATIENT
  Age: 76 Year
  Sex: Female
  Weight: 71 kg

DRUGS (1)
  1. ONIVYDE [Suspect]
     Active Substance: IRINOTECAN HYDROCHLORIDE
     Indication: PANCREATIC CARCINOMA
     Dosage: 111 MG, DAILY
     Route: 042
     Dates: start: 20210210, end: 20210602

REACTIONS (4)
  - Diarrhoea [Unknown]
  - Stomatitis [Recovered/Resolved]
  - Abdominal pain [Fatal]
  - Blood glucose abnormal [Unknown]

NARRATIVE: CASE EVENT DATE: 20210224
